FAERS Safety Report 6580560-5 (Version None)
Quarter: 2010Q1

REPORT INFORMATION
  Report Type: 
  Country: None (occurrence: None)
  Receive Date: 20100212
  Receipt Date: 20100204
  Transmission Date: 20100710
  Serious: Yes (Other)
  Sender: FDA-Public Use
  Company Number: US-PFIZER INC-2008065357

PATIENT
  Sex: Male
  Weight: 37.2 kg

DRUGS (9)
  1. ACCUPRIL [Suspect]
     Indication: HYPERTENSION
     Dates: start: 20040101
  2. LIPITOR [Suspect]
  3. GLUCOPHAGE [Concomitant]
  4. ALLEGRA [Concomitant]
  5. NASACORT [Concomitant]
  6. SYMBICORT [Concomitant]
  7. MULTI-VITAMINS [Concomitant]
  8. NIASPAN [Concomitant]
  9. PLAVIX [Concomitant]

REACTIONS (2)
  - HYPERTENSION [None]
  - MYOCARDIAL INFARCTION [None]
